FAERS Safety Report 7178895-0 (Version None)
Quarter: 2010Q4

REPORT INFORMATION
  Report Type: 
  Country: None (occurrence: None)
  Receive Date: 20101217
  Receipt Date: 20101217
  Transmission Date: 20110411
  Serious: No
  Sender: FDA-Public Use
  Company Number: None

PATIENT
  Age: 62 Year
  Sex: Male
  Weight: 121.8 kg

DRUGS (1)
  1. LIRAGLUTIDE [Suspect]
     Indication: DIABETES MELLITUS
     Dosage: 1.2 MG EVERY DAY SQ
     Route: 058
     Dates: start: 20100701, end: 20101201

REACTIONS (3)
  - DRUG INTOLERANCE [None]
  - NAUSEA [None]
  - VOMITING [None]
